FAERS Safety Report 5913747-2 (Version None)
Quarter: 2008Q4

REPORT INFORMATION
  Report Type: 
  Country: None (occurrence: None)
  Receive Date: 20081009
  Receipt Date: 20081003
  Transmission Date: 20090506
  Serious: Yes (Hospitalization)
  Sender: FDA-Public Use
  Company Number: NL-ABBOTT-08P-114-0444713-00

PATIENT
  Sex: Female
  Weight: 67 kg

DRUGS (9)
  1. HUMIRA [Suspect]
     Indication: RHEUMATOID ARTHRITIS
     Route: 058
     Dates: start: 20040426, end: 20070901
  2. HUMIRA [Suspect]
     Route: 058
     Dates: start: 20080211
  3. PREDNISOLONE [Concomitant]
     Indication: RHEUMATOID ARTHRITIS
     Dates: start: 20020101
  4. ALENDRONINEZUUR [Concomitant]
     Indication: OSTEOPOROSIS
     Dates: start: 20071001
  5. PANTOPRAZOLE SODIUM [Concomitant]
     Indication: PROPHYLAXIS AGAINST GASTROINTESTINAL ULCER
     Dates: start: 20040101
  6. AZATHIOPRINE [Concomitant]
     Indication: RHEUMATOID ARTHRITIS
     Dates: start: 20071001
  7. AZATHIOPRINE [Concomitant]
     Indication: VASCULITIS CEREBRAL
  8. AKWA TEARS [Concomitant]
     Indication: SJOGREN'S SYNDROME
     Dates: start: 20040701
  9. COMMERCIAL HUMIRA [Concomitant]
     Indication: RHEUMATOID ARTHRITIS
     Dates: start: 20040129

REACTIONS (1)
  - VASCULITIS CEREBRAL [None]
